FAERS Safety Report 4660489-X (Version None)
Quarter: 2005Q2

REPORT INFORMATION
  Report Type: 
  Country: None (occurrence: None)
  Receive Date: 20050511
  Receipt Date: 20050511
  Transmission Date: 20051028
  Serious: Yes (Hospitalization)
  Sender: FDA-Public Use
  Company Number: None

PATIENT
  Age: 87 Year
  Sex: Male
  Weight: 73 kg

DRUGS (13)
  1. LEVAQUIN [Suspect]
     Indication: SCROTAL ABSCESS
     Dosage: DAILY
  2. DILANTIN [Concomitant]
  3. AZMACORT [Concomitant]
  4. ASPIRIN [Concomitant]
  5. PROVENTIL [Concomitant]
  6. LASIX [Concomitant]
  7. IRON [Concomitant]
  8. SC NITRO [Concomitant]
  9. ALLOPURINOL [Concomitant]
  10. PRILOSEC [Concomitant]
  11. K-DUR 10 [Concomitant]
  12. LISINOPRIL [Concomitant]
  13. MEVACOR [Concomitant]

REACTIONS (3)
  - CLOSTRIDIUM COLITIS [None]
  - DIZZINESS [None]
  - FALL [None]
